FAERS Safety Report 10071710 (Version 1)
Quarter: 2014Q2

REPORT INFORMATION
  Report Type: Spontaneous
  Country: HR (occurrence: HR)
  Receive Date: 20140411
  Receipt Date: 20140411
  Transmission Date: 20141212
  Serious: Yes (Other)
  Sender: FDA-Public Use
  Company Number: HR-009507513-1404HRV005733

PATIENT
  Age: 43 Year
  Sex: Male
  Weight: 70 kg

DRUGS (2)
  1. CLARINASE [Suspect]
     Indication: RHINITIS
     Dosage: 1 DF, QD (1 DF = 5 MG LORATADINE AND 120 MG PSEUDOEPHEDRINE SULFATE)
     Route: 048
     Dates: start: 20140322, end: 20140322
  2. BRUFEN [Concomitant]
     Indication: NASOPHARYNGITIS
     Dosage: 400 MG, QD
     Route: 048
     Dates: start: 20140322, end: 20140322

REACTIONS (5)
  - Lip swelling [Recovered/Resolved]
  - Lip pruritus [Recovered/Resolved]
  - Oral discomfort [Recovered/Resolved]
  - Hypersensitivity [Recovered/Resolved]
  - Rash generalised [Recovered/Resolved]
